FAERS Safety Report 17454473 (Version 1)
Quarter: 2020Q1

REPORT INFORMATION
  Report Type: Spontaneous
  Country: CA (occurrence: CA)
  Receive Date: 20200225
  Receipt Date: 20200225
  Transmission Date: 20200409
  Serious: Yes (Hospitalization)
  Sender: FDA-Public Use
  Company Number: CA-TAKEDA-2020TUS010737

PATIENT
  Age: 30 Year
  Sex: Male

DRUGS (4)
  1. IMURAN [Concomitant]
     Active Substance: AZATHIOPRINE
     Dosage: UNK
     Dates: end: 201911
  2. REMICADE [Concomitant]
     Active Substance: INFLIXIMAB
     Dosage: 360 MILLIGRAM
     Dates: start: 20191220
  3. ENTYVIO [Suspect]
     Active Substance: VEDOLIZUMAB
     Indication: COLITIS ULCERATIVE
     Dosage: UNK
     Route: 065
     Dates: start: 201904, end: 201911
  4. PREDNISONE. [Concomitant]
     Active Substance: PREDNISONE
     Dosage: UNK

REACTIONS (4)
  - Hypokinesia [Unknown]
  - Colitis ulcerative [Recovering/Resolving]
  - Confusional state [Unknown]
  - Flat affect [Unknown]
